FAERS Safety Report 5405045-0 (Version None)
Quarter: 2007Q3

REPORT INFORMATION
  Report Type: 
  Country: None (occurrence: None)
  Receive Date: 20070803
  Receipt Date: 20070727
  Transmission Date: 20080115
  Serious: Yes (Hospitalization)
  Sender: FDA-Public Use
  Company Number: FR-AMGEN-UK232168

PATIENT
  Sex: Female

DRUGS (15)
  1. ARANESP [Suspect]
     Indication: ANAEMIA OF MALIGNANT DISEASE
     Route: 058
     Dates: start: 20061115, end: 20061207
  2. CORDARONE [Concomitant]
     Route: 048
  3. AMLODIPINE [Concomitant]
     Route: 048
  4. OMEPRAZOLE [Concomitant]
     Route: 048
  5. LASIX [Concomitant]
     Route: 048
  6. ALDACTONE [Concomitant]
     Route: 048
  7. VALACYCLOVIR HCL [Concomitant]
     Route: 048
  8. TEGRETOL [Concomitant]
  9. ALLOPURINOL [Concomitant]
     Route: 048
  10. LANSOYL [Concomitant]
  11. PREVISCAN [Concomitant]
     Route: 048
  12. THERALENE [Concomitant]
  13. CLONAZEPAM [Concomitant]
     Route: 048
  14. VELCADE [Concomitant]
  15. DEXAMETHASONE 0.5MG TAB [Concomitant]

REACTIONS (5)
  - ATRIAL FIBRILLATION [None]
  - CARDIAC FAILURE [None]
  - DYSPNOEA [None]
  - PULMONARY HYPERTENSION [None]
  - PULMONARY OEDEMA [None]
